FAERS Safety Report 21970741 (Version 2)
Quarter: 2023Q1

REPORT INFORMATION
  Report Type: Spontaneous
  Country: CA (occurrence: CA)
  Receive Date: 20230209
  Receipt Date: 20230224
  Transmission Date: 20230417
  Serious: Yes (Death, Disabling)
  Sender: FDA-Public Use
  Company Number: CA-ROCHE-2770199

PATIENT
  Age: 80 Year
  Sex: Male
  Weight: 69 kg

DRUGS (47)
  1. CEFTRIAXONE [Suspect]
     Active Substance: CEFTRIAXONE
     Indication: Bacterial infection
     Route: 042
  2. CEFTRIAXONE [Suspect]
     Active Substance: CEFTRIAXONE
     Route: 042
  3. CEFTRIAXONE [Suspect]
     Active Substance: CEFTRIAXONE
     Route: 042
  4. CEFTRIAXONE [Suspect]
     Active Substance: CEFTRIAXONE
     Route: 042
  5. CALCITRIOL [Suspect]
     Active Substance: CALCITRIOL
     Indication: Vitamin D
     Route: 048
  6. CALCITRIOL [Suspect]
     Active Substance: CALCITRIOL
     Route: 048
  7. CALCITRIOL [Suspect]
     Active Substance: CALCITRIOL
     Route: 048
  8. CALCITRIOL [Suspect]
     Active Substance: CALCITRIOL
     Route: 048
  9. ALLOPURINOL [Suspect]
     Active Substance: ALLOPURINOL
     Indication: Blood uric acid increased
     Dosage: 100 MG
     Route: 048
  10. ALLOPURINOL [Suspect]
     Active Substance: ALLOPURINOL
     Indication: Intentional product misuse
     Route: 048
  11. ALLOPURINOL [Suspect]
     Active Substance: ALLOPURINOL
     Indication: Off label use
     Route: 048
  12. ALLOPURINOL [Suspect]
     Active Substance: ALLOPURINOL
     Route: 048
  13. ALLOPURINOL [Suspect]
     Active Substance: ALLOPURINOL
     Route: 048
  14. ALLOPURINOL [Suspect]
     Active Substance: ALLOPURINOL
     Route: 048
  15. ALLOPURINOL [Suspect]
     Active Substance: ALLOPURINOL
     Route: 048
  16. ALLOPURINOL [Suspect]
     Active Substance: ALLOPURINOL
     Route: 048
  17. ALLOPURINOL [Suspect]
     Active Substance: ALLOPURINOL
     Route: 048
  18. DEXTROSE [Suspect]
     Active Substance: DEXTROSE
     Indication: Nutritional supplementation
     Route: 042
  19. DEXTROSE [Suspect]
     Active Substance: DEXTROSE
     Indication: Intentional product misuse
     Route: 042
  20. DEXTROSE [Suspect]
     Active Substance: DEXTROSE
     Indication: Off label use
     Route: 042
  21. DEXTROSE [Suspect]
     Active Substance: DEXTROSE
     Route: 042
  22. DEXTROSE [Suspect]
     Active Substance: DEXTROSE
     Route: 042
  23. DEXTROSE [Suspect]
     Active Substance: DEXTROSE
     Route: 042
  24. DEXTROSE [Suspect]
     Active Substance: DEXTROSE
     Route: 042
  25. DEXTROSE [Suspect]
     Active Substance: DEXTROSE
     Route: 042
  26. DEXTROSE [Suspect]
     Active Substance: DEXTROSE
     Route: 042
  27. DEXTROSE [Suspect]
     Active Substance: DEXTROSE
     Route: 042
  28. DEXTROSE [Suspect]
     Active Substance: DEXTROSE
     Route: 042
  29. DEXTROSE [Suspect]
     Active Substance: DEXTROSE
     Route: 042
  30. DEXTROSE [Suspect]
     Active Substance: DEXTROSE
     Route: 042
  31. VITAMIN K1 [Suspect]
     Active Substance: PHYTONADIONE
     Indication: Vitamin supplementation
     Route: 065
  32. VITAMIN K1 [Suspect]
     Active Substance: PHYTONADIONE
     Route: 042
  33. VITAMIN K1 [Suspect]
     Active Substance: PHYTONADIONE
     Route: 065
  34. VITAMIN K1 [Suspect]
     Active Substance: PHYTONADIONE
     Route: 042
  35. VITAMIN K1 [Suspect]
     Active Substance: PHYTONADIONE
     Route: 050
  36. VITAMIN K1 [Suspect]
     Active Substance: PHYTONADIONE
     Route: 050
  37. OSELTAMIVIR [Suspect]
     Active Substance: OSELTAMIVIR
     Indication: Product used for unknown indication
     Route: 054
  38. DOBUTAMINE HYDROCHLORIDE [Concomitant]
     Active Substance: DOBUTAMINE HYDROCHLORIDE
     Indication: Cardiogenic shock
     Route: 065
  39. DOBUTAMINE HYDROCHLORIDE [Concomitant]
     Active Substance: DOBUTAMINE HYDROCHLORIDE
     Route: 042
  40. RIBOFLAVIN [Concomitant]
     Active Substance: RIBOFLAVIN
     Route: 048
  41. ALBUTEROL [Concomitant]
     Active Substance: ALBUTEROL
  42. SIMVASTATIN [Concomitant]
     Active Substance: SIMVASTATIN
     Indication: Blood cholesterol increased
     Route: 048
  43. DISODIUM HYDROGEN CITRATE [Concomitant]
     Active Substance: DISODIUM HYDROGEN CITRATE
     Route: 065
  44. SODIUM PICOSULFATE [Concomitant]
     Active Substance: SODIUM PICOSULFATE
     Indication: Constipation
     Route: 054
  45. VITAMIN C [Concomitant]
     Active Substance: ASCORBIC ACID
  46. WARFARIN [Concomitant]
     Active Substance: WARFARIN
     Route: 048
  47. WARFARIN [Concomitant]
     Active Substance: WARFARIN
     Route: 048

REACTIONS (27)
  - Abdominal distension [Fatal]
  - Abdominal pain [Fatal]
  - Appendicolith [Fatal]
  - Ascites [Fatal]
  - Cardiogenic shock [Fatal]
  - Constipation [Fatal]
  - General physical health deterioration [Fatal]
  - Hyponatraemia [Fatal]
  - Multiple organ dysfunction syndrome [Fatal]
  - Nausea [Fatal]
  - Sepsis [Fatal]
  - Stress [Fatal]
  - Vomiting [Fatal]
  - Appendicitis [Fatal]
  - Ventricular fibrillation [Fatal]
  - Blood phosphorus increased [Fatal]
  - Somnolence [Fatal]
  - Condition aggravated [Fatal]
  - Dry mouth [Fatal]
  - Off label use [Fatal]
  - Appendicitis [Fatal]
  - Blood cholesterol increased [Fatal]
  - Blood uric acid increased [Fatal]
  - Myasthenia gravis [Fatal]
  - Intentional product misuse [Fatal]
  - Incorrect route of product administration [Fatal]
  - Death [Fatal]
